FAERS Safety Report 13825627 (Version 1)
Quarter: 2017Q3

REPORT INFORMATION
  Report Type: Spontaneous
  Country: DK (occurrence: DK)
  Receive Date: 20170802
  Receipt Date: 20170802
  Transmission Date: 20171127
  Serious: Yes (Congenital Anomaly)
  Sender: FDA-Public Use
  Company Number: DK-TEVA-790461ACC

PATIENT
  Sex: Male

DRUGS (3)
  1. BETNOVAT [Suspect]
     Active Substance: BETAMETHASONE
     Indication: PSORIASIS
     Dosage: 1 DOSAGE FORMS DAILY; DOSAGE: 1 LUBRICATION, STRENGTH: 1 MG / G.
     Route: 064
     Dates: start: 20170130, end: 20170227
  2. CETIRIZIN ^ACTAVIS^ [Suspect]
     Active Substance: CETIRIZINE HYDROCHLORIDE
     Indication: PSORIASIS
     Dosage: 10 MILLIGRAM DAILY;
     Route: 064
     Dates: start: 20170130, end: 20170227
  3. LOCOID [Suspect]
     Active Substance: HYDROCORTISONE BUTYRATE
     Indication: PSORIASIS
     Dosage: 1 DOSAGE FORMS DAILY; DOSAGE: 1 LUBRICATION, STRENGTH: 0.1%
     Route: 064
     Dates: start: 20170130, end: 20170227

REACTIONS (2)
  - Congenital hand malformation [Not Recovered/Not Resolved]
  - Foetal exposure during pregnancy [Recovered/Resolved]
